FAERS Safety Report 21476625 (Version 1)
Quarter: 2022Q4

REPORT INFORMATION
  Report Type: Spontaneous
  Country: US (occurrence: US)
  Receive Date: 20221019
  Receipt Date: 20221019
  Transmission Date: 20230113
  Serious: No
  Sender: FDA-Public Use
  Company Number: US-ALLERGAN-2204547US

PATIENT
  Sex: Male
  Weight: 80 kg

DRUGS (1)
  1. LINZESS [Suspect]
     Active Substance: LINACLOTIDE
     Indication: Constipation
     Dosage: 290 ?G, QD
     Dates: start: 2021

REACTIONS (4)
  - Inappropriate schedule of product administration [Unknown]
  - Drug ineffective [Unknown]
  - Product quality issue [Unknown]
  - Product physical issue [Unknown]
